FAERS Safety Report 22399822 (Version 3)
Quarter: 2023Q2

REPORT INFORMATION
  Report Type: Spontaneous
  Country: FR (occurrence: FR)
  Receive Date: 20230602
  Receipt Date: 20230613
  Transmission Date: 20230721
  Serious: Yes (Other)
  Sender: FDA-Public Use
  Company Number: FR-TEVA-2023-FR-2892325

PATIENT
  Age: 58 Year
  Sex: Male

DRUGS (3)
  1. HYDROXYZINE HYDROCHLORIDE [Suspect]
     Active Substance: HYDROXYZINE HYDROCHLORIDE
     Indication: Product used for unknown indication
     Dosage: 0.5 TO 1 DF DAILY
     Route: 065
     Dates: start: 202304, end: 202305
  2. EBASTINE [Concomitant]
     Active Substance: EBASTINE
     Indication: Seasonal allergy
  3. EBASTINE [Concomitant]
     Active Substance: EBASTINE
     Indication: Mite allergy

REACTIONS (7)
  - Loss of consciousness [Recovered/Resolved]
  - Near death experience [Recovered/Resolved]
  - Altered state of consciousness [Recovered/Resolved]
  - Vertigo [Recovered/Resolved]
  - Asthenia [Recovered/Resolved]
  - Dissociation [Recovered/Resolved]
  - Dyskinesia [Recovered/Resolved]

NARRATIVE: CASE EVENT DATE: 20230522
